FAERS Safety Report 6141430-X (Version None)
Quarter: 2009Q1

REPORT INFORMATION
  Report Type: 
  Country: None (occurrence: None)
  Receive Date: 20090331
  Receipt Date: 20090317
  Transmission Date: 20090719
  Serious: Yes (Other)
  Sender: FDA-Public Use
  Company Number: 2009S1004574

PATIENT
  Age: 45 Year
  Sex: Male

DRUGS (4)
  1. LOVAN (FLUOXETINE HYDROCHLORIDE) (20 MG) [Suspect]
     Indication: DEPRESSION
     Dosage: 20 MG;DAILY;ORAL ; 30 MG;DAILY;ORAL ; 40 MG;DAILY;ORAL ; 50 MG;DAILY;ORAL
     Route: 048
     Dates: start: 20070601, end: 20070901
  2. LOVAN (FLUOXETINE HYDROCHLORIDE) (20 MG) [Suspect]
     Indication: DEPRESSION
     Dosage: 20 MG;DAILY;ORAL ; 30 MG;DAILY;ORAL ; 40 MG;DAILY;ORAL ; 50 MG;DAILY;ORAL
     Route: 048
     Dates: start: 20070901, end: 20071001
  3. LOVAN (FLUOXETINE HYDROCHLORIDE) (20 MG) [Suspect]
     Indication: DEPRESSION
     Dosage: 20 MG;DAILY;ORAL ; 30 MG;DAILY;ORAL ; 40 MG;DAILY;ORAL ; 50 MG;DAILY;ORAL
     Route: 048
     Dates: start: 20071001, end: 20080601
  4. LOVAN (FLUOXETINE HYDROCHLORIDE) (20 MG) [Suspect]
     Indication: DEPRESSION
     Dosage: 20 MG;DAILY;ORAL ; 30 MG;DAILY;ORAL ; 40 MG;DAILY;ORAL ; 50 MG;DAILY;ORAL
     Route: 048
     Dates: start: 20080601

REACTIONS (4)
  - AKATHISIA [None]
  - ALCOHOL INTERACTION [None]
  - CONDITION AGGRAVATED [None]
  - DEPRESSION [None]
